FAERS Safety Report 20628707 (Version 1)
Quarter: 2022Q1

REPORT INFORMATION
  Report Type: Spontaneous
  Country: ES (occurrence: ES)
  Receive Date: 20220323
  Receipt Date: 20220323
  Transmission Date: 20220424
  Serious: Yes (Hospitalization)
  Sender: FDA-Public Use
  Company Number: ES-ABBVIE-22K-144-4272208-00

PATIENT
  Sex: Male

DRUGS (2)
  1. AZACITIDINE [Suspect]
     Active Substance: AZACITIDINE
     Indication: Acute myeloid leukaemia
     Dosage: UNK
     Route: 065
  2. VENETOCLAX [Suspect]
     Active Substance: VENETOCLAX
     Indication: Acute myeloid leukaemia
     Dosage: UNK
     Route: 048
     Dates: end: 2022

REACTIONS (4)
  - Myelodysplastic syndrome [Unknown]
  - Toxicity to various agents [Unknown]
  - Hyperbilirubinaemia [Unknown]
  - Pancytopenia [Not Recovered/Not Resolved]
